FAERS Safety Report 7134226-3 (Version None)
Quarter: 2010Q4

REPORT INFORMATION
  Report Type: 
  Country: None (occurrence: None)
  Receive Date: 20101203
  Receipt Date: 20101124
  Transmission Date: 20110411
  Serious: Yes (Hospitalization)
  Sender: FDA-Public Use
  Company Number: BR-ASTRAZENECA-2010SE56254

PATIENT
  Age: 69 Year
  Sex: Female
  Weight: 72 kg

DRUGS (10)
  1. ATACAND [Suspect]
     Indication: HYPERTENSION
     Route: 048
     Dates: end: 20101111
  2. ATACAND COMB [Suspect]
     Indication: HYPERTENSION
     Dosage: 16/5 MG
     Route: 048
     Dates: start: 20101111
  3. METOPROLOL TARTRATE [Suspect]
     Indication: HYPERTENSION
     Route: 048
     Dates: start: 20080101
  4. MONOCORDIL [Concomitant]
     Route: 048
     Dates: end: 20101101
  5. VASTAREL [Suspect]
     Route: 048
     Dates: end: 20101101
  6. METFORMIN HYDROCHLORIDE [Concomitant]
     Indication: DIABETES MELLITUS
     Route: 048
     Dates: start: 20080101
  7. LIPITOR [Concomitant]
     Indication: HYPERCHOLESTEROLAEMIA
     Route: 048
     Dates: start: 20080101
  8. NATRILIX [Concomitant]
     Route: 048
     Dates: start: 20080101
  9. PANTOPRAZOLE [Concomitant]
     Route: 048
  10. ASPIRIN [Concomitant]
     Route: 048
     Dates: start: 20080101

REACTIONS (3)
  - BLOOD PRESSURE INCREASED [None]
  - POSTOPERATIVE WOUND INFECTION [None]
  - VENOUS OCCLUSION [None]
